FAERS Safety Report 23921328 (Version 1)
Quarter: 2024Q2

REPORT INFORMATION
  Report Type: Spontaneous
  Country: US (occurrence: US)
  Receive Date: 20240530
  Receipt Date: 20240530
  Transmission Date: 20240716
  Serious: No
  Sender: FDA-Public Use
  Company Number: US-SA-SAC20240430000489

PATIENT
  Sex: Male
  Weight: 19.05 kg

DRUGS (1)
  1. DUPIXENT [Suspect]
     Active Substance: DUPILUMAB
     Dosage: 1 DF, Q4W
     Route: 058

REACTIONS (4)
  - Eye pain [Unknown]
  - Headache [Unknown]
  - Emotional disorder of childhood [Unknown]
  - Arthralgia [Unknown]
